FAERS Safety Report 9503413 (Version 3)
Quarter: 2014Q2

REPORT INFORMATION
  Report Type: Spontaneous
  Country: US (occurrence: US)
  Receive Date: 20130906
  Receipt Date: 20140617
  Transmission Date: 20141212
  Serious: Yes (Hospitalization)
  Sender: FDA-Public Use
  Company Number: US-BAYER-2013-104923

PATIENT
  Age: 32 Year
  Sex: Female
  Weight: 52.15 kg

DRUGS (4)
  1. MIRENA [Suspect]
     Indication: CONTRACEPTION
     Dosage: 20 MCG/24HR, CONT
     Route: 015
     Dates: start: 20110721, end: 20120714
  2. IBUPROFEN [Concomitant]
     Dosage: AS NEEDED
  3. AMOXICILLIN [Concomitant]
     Dosage: ONE COURSE
  4. MONISTAT [Concomitant]
     Dosage: ONE COURSE

REACTIONS (20)
  - Uterine perforation [None]
  - Device dislocation [None]
  - Ileus [None]
  - Mesothelioma [None]
  - Peritonitis [None]
  - Pelvic abscess [None]
  - Uterine infection [None]
  - Oophoritis [None]
  - Ovarian mass [None]
  - Pelvic adhesions [None]
  - Uterine leiomyoma [None]
  - Uterine haemorrhage [None]
  - Benign ovarian tumour [None]
  - Ascites [None]
  - Abdominal pain [None]
  - Nausea [None]
  - Vomiting [None]
  - Medical device pain [None]
  - Injury [None]
  - Depression [None]
